FAERS Safety Report 7951017-1 (Version None)
Quarter: 2011Q4

REPORT INFORMATION
  Report Type: 
  Country: None (occurrence: None)
  Receive Date: 20111201
  Receipt Date: 20111128
  Transmission Date: 20120403
  Serious: No
  Sender: FDA-Public Use
  Company Number: US-BIOGENIDEC-2011BI045081

PATIENT
  Sex: Female

DRUGS (1)
  1. TYSABRI [Suspect]
     Indication: MULTIPLE SCLEROSIS
     Route: 042
     Dates: end: 20110501

REACTIONS (5)
  - INSOMNIA [None]
  - PAIN [None]
  - ABDOMINAL DISCOMFORT [None]
  - FATIGUE [None]
  - RESTLESSNESS [None]
